FAERS Safety Report 7281845-X (Version None)
Quarter: 2011Q1

REPORT INFORMATION
  Report Type: 
  Country: None (occurrence: None)
  Receive Date: 20110208
  Receipt Date: 20110127
  Transmission Date: 20110831
  Serious: Yes (Other)
  Sender: FDA-Public Use
  Company Number: JP-AMGEN-JPNCT2010011976

PATIENT
  Age: 77 Year
  Sex: Female
  Weight: 59 kg

DRUGS (20)
  1. FLUOROURACIL [Suspect]
     Indication: COLORECTAL CANCER
     Route: 040
     Dates: start: 20101015, end: 20101029
  2. KYTRIL [Concomitant]
     Dosage: UNK
     Route: 042
  3. OMEPRAL [Concomitant]
     Route: 048
  4. PANITUMUMAB [Suspect]
     Indication: COLORECTAL CANCER
     Dosage: 6 MG/KG, Q2WK
     Route: 041
     Dates: start: 20101015, end: 20101029
  5. METHYCOBAL [Concomitant]
     Indication: DIABETIC NEUROPATHY
     Dosage: UNK
     Route: 048
  6. OMEPRAL [Concomitant]
     Indication: REFLUX OESOPHAGITIS
     Dosage: UNK
     Route: 048
  7. PAXIL [Concomitant]
     Dosage: UNK
     Route: 048
  8. CEROCRAL [Concomitant]
     Indication: DIZZINESS
     Dosage: UNK
     Route: 048
  9. CALCIUM LEVOFOLINATE [Concomitant]
     Indication: COLORECTAL CANCER
     Route: 041
     Dates: start: 20101015, end: 20101029
  10. WYPAX [Concomitant]
     Dosage: UNK
     Route: 048
  11. MYSLEE [Concomitant]
     Indication: DEPRESSION
     Dosage: UNK
     Route: 048
  12. ROHYPNOL [Concomitant]
     Indication: DEPRESSION
     Dosage: UNK
     Route: 048
  13. KINEDAK [Concomitant]
     Indication: DIABETIC NEUROPATHY
     Dosage: UNK
     Route: 048
  14. IRINOTECAN HYDROCHLORIDE [Suspect]
     Indication: COLORECTAL CANCER
     Route: 041
     Dates: start: 20101015, end: 20101029
  15. DEXART [Concomitant]
     Dosage: UNK
     Route: 042
  16. THYRADIN-S [Concomitant]
     Dosage: UNK
     Route: 048
  17. FLUOROURACIL [Suspect]
     Route: 041
     Dates: start: 20101015, end: 20101029
  18. EMEND [Concomitant]
     Dosage: UNK
     Route: 048
  19. ATELEC [Concomitant]
     Dosage: UNK
     Route: 048
  20. ALOXI [Concomitant]
     Dosage: UNK
     Route: 042

REACTIONS (9)
  - PARONYCHIA [None]
  - FATIGUE [None]
  - DERMATITIS ACNEIFORM [None]
  - NAUSEA [None]
  - VOMITING [None]
  - DECREASED APPETITE [None]
  - PALMAR-PLANTAR ERYTHRODYSAESTHESIA SYNDROME [None]
  - STOMATITIS [None]
  - DIARRHOEA [None]
